FAERS Safety Report 20958223 (Version 3)
Quarter: 2024Q3

REPORT INFORMATION
  Report Type: Spontaneous
  Country: US (occurrence: US)
  Receive Date: 20220614
  Receipt Date: 20240712
  Transmission Date: 20241016
  Serious: No
  Sender: PIERRE FABRE MEDICAMENT
  Company Number: US-PFM-2022-03753

PATIENT
  Sex: Female
  Weight: 5 kg

DRUGS (1)
  1. HEMANGEOL [Suspect]
     Active Substance: PROPRANOLOL HYDROCHLORIDE
     Indication: Haemangioma
     Dosage: 1.4 ML, BID (2/DAY)
     Route: 048
     Dates: start: 2022

REACTIONS (5)
  - Peripheral coldness [Unknown]
  - Sleep disorder [Unknown]
  - Abdominal discomfort [Unknown]
  - Infantile spitting up [Unknown]
  - Drug ineffective [Unknown]

NARRATIVE: CASE EVENT DATE: 20220101
